FAERS Safety Report 5921925-1 (Version None)
Quarter: 2008Q4

REPORT INFORMATION
  Report Type: 
  Country: None (occurrence: None)
  Receive Date: 20081017
  Receipt Date: 20081007
  Transmission Date: 20090506
  Serious: Yes (Hospitalization)
  Sender: FDA-Public Use
  Company Number: JP-AMGEN-US312894

PATIENT
  Sex: Female

DRUGS (2)
  1. ENBREL [Suspect]
     Indication: RHEUMATOID ARTHRITIS
     Dosage: LYOPHILIZED VIAL; DOSE AND FREQUENCY NOT SPECIFIED
     Route: 058
     Dates: start: 20080201
  2. ENBREL [Suspect]
     Dosage: PREFILLED SYRINGE; DOSE AND FREQUENCY NOT SPECIFIED
     Route: 058

REACTIONS (2)
  - DIABETES MELLITUS [None]
  - OEDEMA PERIPHERAL [None]
